FAERS Safety Report 7589032-2 (Version None)
Quarter: 2011Q3

REPORT INFORMATION
  Report Type: 
  Country: None (occurrence: None)
  Receive Date: 20110705
  Receipt Date: 20110624
  Transmission Date: 20111222
  Serious: Yes (Life-Threatening, Hospitalization)
  Sender: FDA-Public Use
  Company Number: US-BAYER-2011-004766

PATIENT
  Age: 48 Year
  Sex: Female
  Weight: 74.83 kg

DRUGS (7)
  1. YASMIN [Suspect]
     Indication: MENSTRUAL DISORDER
     Dosage: UNK
     Dates: start: 20030101, end: 20050101
  2. LAMICTAL [Concomitant]
     Indication: BIPOLAR DISORDER
     Dosage: UNK
     Dates: start: 20020101
  3. CLARITIN-D 24 HOUR [Concomitant]
  4. YAZ [Suspect]
     Indication: DYSFUNCTIONAL UTERINE BLEEDING
  5. YASMIN [Suspect]
     Indication: DYSFUNCTIONAL UTERINE BLEEDING
  6. PROZAC [Concomitant]
     Indication: DEPRESSION
     Dosage: UNK
     Dates: start: 20020101
  7. YAZ [Suspect]
     Indication: MENSTRUAL DISORDER
     Dosage: UNK
     Dates: start: 20030101, end: 20050101

REACTIONS (4)
  - EMOTIONAL DISTRESS [None]
  - PAIN [None]
  - DEEP VEIN THROMBOSIS [None]
  - PULMONARY EMBOLISM [None]
